FAERS Safety Report 16876243 (Version 1)
Quarter: 2019Q4

REPORT INFORMATION
  Report Type: Spontaneous
  Country: US (occurrence: US)
  Receive Date: 20191002
  Receipt Date: 20191002
  Transmission Date: 20200122
  Serious: No
  Sender: FDA-Public Use
  Company Number: US-GW PHARMA-201909USGW3267

PATIENT

DRUGS (15)
  1. ONFI [Concomitant]
     Active Substance: CLOBAZAM
     Indication: LENNOX-GASTAUT SYNDROME
     Dosage: 30 MILLIGRAM, BID
     Route: 048
     Dates: start: 2012
  2. FOLIC ACID. [Concomitant]
     Active Substance: FOLIC ACID
     Indication: LEUKOPENIA
     Dosage: 1 MILLIGRAM, QD
     Route: 065
  3. EPIDIOLEX [Suspect]
     Active Substance: CANNABIDIOL
     Dosage: 400MG/4MLS BID
     Route: 048
     Dates: start: 2019
  4. DULCOLAX (BISACODYL) [Concomitant]
     Active Substance: BISACODYL
     Indication: CONSTIPATION
     Dosage: 10 MILLIGRAM, QD (QAM)
     Route: 065
  5. CALCITONIN [Concomitant]
     Active Substance: CALCITONIN
     Indication: OSTEOPENIA
     Dosage: 1 SPRAY Q NARE Q D
     Route: 065
  6. MULTIVITAMIN [ASCORBIC ACID;BIOTIN;CALCIUM PANTOTHENATE;CYANOCOBALAMIN [Concomitant]
     Active Substance: VITAMINS
     Indication: PROPHYLAXIS
     Dosage: 1 TABLET, QD
     Route: 065
  7. THERMOTABS [Concomitant]
     Indication: HYPONATRAEMIA
     Dosage: 1 TABLET, BID
     Route: 065
  8. VIMPAT [Concomitant]
     Active Substance: LACOSAMIDE
     Indication: LENNOX-GASTAUT SYNDROME
     Dosage: 200 MILLIGRAM, BID
     Route: 065
     Dates: start: 2013
  9. TRILEPTAL [Concomitant]
     Active Substance: OXCARBAZEPINE
     Indication: LENNOX-GASTAUT SYNDROME
     Dosage: 300 MILLIGRAM, BID
     Route: 048
     Dates: start: 2013
  10. ASA [Concomitant]
     Active Substance: ASPIRIN
     Indication: PROPHYLAXIS
     Dosage: 81 MILLIGRAM, QD
     Route: 065
  11. CITRACAL + D [CALCIUM CITRATE;COLECALCIFEROL] [Concomitant]
     Active Substance: CALCIUM CITRATE\CHOLECALCIFEROL
     Indication: OSTEOPENIA
     Dosage: 1 TABLET, QD
     Route: 065
  12. ENULOSE [Concomitant]
     Active Substance: LACTULOSE
     Indication: CONSTIPATION
     Dosage: 10 GRAM, QD
     Route: 065
  13. MIDODRINE [Concomitant]
     Active Substance: MIDODRINE
     Indication: HYPOTENSION
     Dosage: 10 MILLIGRAM, Q8H
     Route: 065
  14. EPIDIOLEX [Suspect]
     Active Substance: CANNABIDIOL
     Indication: LENNOX-GASTAUT SYNDROME
     Dosage: 200MG/2ML BID
     Route: 048
     Dates: start: 20190213, end: 2019
  15. MIRALAX [Concomitant]
     Active Substance: POLYETHYLENE GLYCOL 3350
     Indication: CONSTIPATION
     Dosage: 17 GRAM, QD
     Route: 065

REACTIONS (1)
  - Pyrexia [Recovered/Resolved]

NARRATIVE: CASE EVENT DATE: 20190811
